FAERS Safety Report 6509320-8 (Version None)
Quarter: 2009Q4

REPORT INFORMATION
  Report Type: 
  Country: None (occurrence: None)
  Receive Date: 20091222
  Receipt Date: 20091211
  Transmission Date: 20100525
  Serious: Yes (Hospitalization)
  Sender: FDA-Public Use
  Company Number: GR-RANBAXY-2009RR-29740

PATIENT
  Age: 69 Year
  Sex: Female

DRUGS (3)
  1. CARVEDILOL [Suspect]
     Indication: HYPERTENSION
  2. CARVEDILOL [Suspect]
     Indication: LEFT VENTRICULAR HYPERTROPHY
  3. FLUOXETINE [Concomitant]
     Indication: DEPRESSION

REACTIONS (1)
  - PNEUMONITIS [None]
